FAERS Safety Report 9971999 (Version 1)
Quarter: 2014Q1

REPORT INFORMATION
  Report Type: Spontaneous
  Country: US (occurrence: None)
  Receive Date: 20140305
  Receipt Date: 20140305
  Transmission Date: 20141002
  Serious: Yes (Disabling)
  Sender: FDA-Public Use
  Company Number: None

PATIENT
  Age: 35 Year
  Sex: Female
  Weight: 49.9 kg

DRUGS (1)
  1. AZITHROMYCIN 1 G [Suspect]
     Dosage: 1 PILL
     Route: 048
     Dates: start: 20130817, end: 20130817

REACTIONS (4)
  - Rash [None]
  - Pityriasis rosea [None]
  - Influenza like illness [None]
  - Unevaluable event [None]
